FAERS Safety Report 10598359 (Version 1)
Quarter: 2014Q4

REPORT INFORMATION
  Report Type: Spontaneous
  Country: CN (occurrence: CN)
  Receive Date: 20141121
  Receipt Date: 20141121
  Transmission Date: 20150529
  Serious: Yes (Hospitalization)
  Sender: FDA-Public Use
  Company Number: CN-MYLANLABS-2014M1011224

PATIENT

DRUGS (2)
  1. ALLOPURINOL. [Suspect]
     Active Substance: ALLOPURINOL
     Indication: GOUT
     Route: 048
  2. PANAX NOTOGINSENG [Concomitant]
     Route: 065

REACTIONS (5)
  - Erythema [None]
  - Rash pruritic [None]
  - Rash maculo-papular [None]
  - Purpura [Recovered/Resolved]
  - Hypofibrinogenaemia [Recovered/Resolved]
